FAERS Safety Report 7227488-5 (Version None)
Quarter: 2011Q1

REPORT INFORMATION
  Report Type: 
  Country: None (occurrence: None)
  Receive Date: 20110114
  Receipt Date: 20110110
  Transmission Date: 20110831
  Serious: Yes (Other)
  Sender: FDA-Public Use
  Company Number: FR-BRISTOL-MYERS SQUIBB COMPANY-15482177

PATIENT
  Age: 1 Year
  Sex: Female
  Weight: 2 kg

DRUGS (6)
  1. TAXOL [Suspect]
     Route: 064
  2. ENDOXAN [Suspect]
     Route: 064
  3. FLUOROURACIL [Suspect]
     Route: 064
  4. LOXEN [Concomitant]
     Route: 064
     Dates: start: 20101001
  5. FARMORUBICINE [Suspect]
     Route: 064
  6. CELESTONE [Concomitant]
     Route: 064
     Dates: start: 20100930

REACTIONS (3)
  - HYPOGLYCAEMIA NEONATAL [None]
  - FOETAL GROWTH RESTRICTION [None]
  - MATERNAL DRUGS AFFECTING FOETUS [None]
